FAERS Safety Report 5412441-4 (Version None)
Quarter: 2007Q3

REPORT INFORMATION
  Report Type: 
  Country: None (occurrence: None)
  Receive Date: 20070713
  Receipt Date: 20070306
  Transmission Date: 20080115
  Serious: Yes (Hospitalization)
  Sender: FDA-Public Use
  Company Number: US-JNJFOC-20061000250

PATIENT
  Age: 33 Year
  Sex: Female
  Weight: 67.5 kg

DRUGS (3)
  1. ORTHO EVRA [Suspect]
     Indication: CONTRACEPTION
     Dosage: ORDERED 29-AUG-2005
     Dates: start: 20050801
  2. ORTHO EVRA [Suspect]
     Indication: MENORRHAGIA
     Dosage: ORDERED 29-AUG-2005
     Dates: start: 20050801
  3. ORTHO EVRA [Suspect]
     Indication: MENSTRUATION IRREGULAR
     Dosage: ORDERED 29-AUG-2005
     Dates: start: 20050801

REACTIONS (1)
  - PULMONARY EMBOLISM [None]
